FAERS Safety Report 6882248-X (Version None)
Quarter: 2010Q3

REPORT INFORMATION
  Report Type: 
  Country: None (occurrence: None)
  Receive Date: 20100729
  Receipt Date: 20100723
  Transmission Date: 20110219
  Serious: Yes (Hospitalization, Other)
  Sender: FDA-Public Use
  Company Number: US-ELI_LILLY_AND_COMPANY-US201001003859

PATIENT
  Sex: Female
  Weight: 126.98 kg

DRUGS (6)
  1. BYETTA [Suspect]
     Dosage: UNK, UNKNOWN
     Route: 065
     Dates: start: 20060401, end: 20081001
  2. LIPITOR [Concomitant]
  3. GLUCOPHAGE [Concomitant]
  4. ACCURETIC [Concomitant]
  5. PROTONIX [Concomitant]
  6. INSULIN [Concomitant]

REACTIONS (2)
  - OFF LABEL USE [None]
  - PANCREATITIS ACUTE [None]
